FAERS Safety Report 6309139-7 (Version None)
Quarter: 2009Q3

REPORT INFORMATION
  Report Type: 
  Country: None (occurrence: None)
  Receive Date: 20090814
  Receipt Date: 20090423
  Transmission Date: 20100115
  Serious: No
  Sender: FDA-Public Use
  Company Number: A0780310A

PATIENT
  Age: 86 Year
  Sex: Female

DRUGS (5)
  1. COREG CR [Suspect]
     Indication: HEART RATE DECREASED
     Dosage: 40MG PER DAY
     Route: 048
     Dates: start: 20090101
  2. COUMADIN [Concomitant]
  3. DIGITALIS TAB [Concomitant]
  4. AVALIDE [Concomitant]
  5. XALATAN [Concomitant]

REACTIONS (3)
  - DYSPHONIA [None]
  - INCREASED UPPER AIRWAY SECRETION [None]
  - SPEECH DISORDER [None]
